FAERS Safety Report 10413034 (Version 1)
Quarter: 2014Q3

REPORT INFORMATION
  Report Type: Spontaneous
  Country: CZ (occurrence: CZ)
  Receive Date: 20140827
  Receipt Date: 20140827
  Transmission Date: 20150326
  Serious: Yes (Hospitalization, Other)
  Sender: FDA-Public Use
  Company Number: CZ-TEVA-503059ISR

PATIENT
  Age: 7 Year
  Sex: Female

DRUGS (2)
  1. AERIUS [Concomitant]
     Active Substance: DESLORATADINE
     Dosage: 1 DOSAGE FORMS DAILY;
     Dates: start: 201302
  2. MONTELUKAST TEVA 5 MG, V?KAC? TABLETA [Suspect]
     Active Substance: MONTELUKAST SODIUM
     Indication: ASTHMA
     Dosage: 5 MILLIGRAM DAILY;
     Route: 048
     Dates: start: 20140124, end: 20140314

REACTIONS (4)
  - Urticaria [Unknown]
  - Cheilitis [Unknown]
  - Oxygen saturation decreased [Unknown]
  - Obstructive airways disorder [Unknown]

NARRATIVE: CASE EVENT DATE: 20140314
